FAERS Safety Report 10600976 (Version 2)
Quarter: 2014Q4

REPORT INFORMATION
  Report Type: Report from Study
  Country: US (occurrence: US)
  Receive Date: 20141124
  Receipt Date: 20141124
  Transmission Date: 20150529
  Serious: Yes (Death, Hospitalization, Other)
  Sender: FDA-Public Use
  Company Number: US-BAYER-2014-168731

PATIENT
  Age: 57 Year
  Sex: Male
  Weight: 65.31 kg

DRUGS (2)
  1. NEXAVAR [Suspect]
     Active Substance: SORAFENIB
     Indication: HEPATIC CANCER
     Dosage: 400 MG, BID
     Route: 048
     Dates: start: 20140903, end: 20141016
  2. LACTULOSE. [Concomitant]
     Active Substance: LACTULOSE

REACTIONS (7)
  - Ammonia increased [None]
  - Death [Fatal]
  - Unresponsive to stimuli [None]
  - Decreased appetite [None]
  - Hepatic failure [None]
  - Drug ineffective [None]
  - Nausea [Recovered/Resolved]

NARRATIVE: CASE EVENT DATE: 201409
